FAERS Safety Report 4292468-9 (Version None)
Quarter: 2004Q1

REPORT INFORMATION
  Report Type: 
  Country: None (occurrence: None)
  Receive Date: 20040211
  Receipt Date: 20040211
  Transmission Date: 20041129
  Serious: Yes (Other)
  Sender: FDA-Public Use
  Company Number: None

PATIENT
  Age: 51 Year
  Sex: Female

DRUGS (8)
  1. VISIPAQUE [Suspect]
     Dates: start: 20040108
  2. OMNIPAQUE 240 [Suspect]
     Dates: start: 20040108
  3. ASPIRIN [Concomitant]
  4. PLAVIX [Concomitant]
  5. ATENOLOL [Concomitant]
  6. PAXIL [Concomitant]
  7. SIMVASTATIN [Concomitant]
  8. OLMESARTAN [Concomitant]

REACTIONS (2)
  - FLUSHING [None]
  - TREMOR [None]
